FAERS Safety Report 18517930 (Version 3)
Quarter: 2021Q3

REPORT INFORMATION
  Report Type: Other
  Country: US (occurrence: US)
  Receive Date: 20201118
  Receipt Date: 20210902
  Transmission Date: 20211014
  Serious: No
  Sender: FDA-Public Use
  Company Number: US-LUPIN PHARMACEUTICALS INC.-2020-08319

PATIENT

DRUGS (1)
  1. SERTRALINE HYDROCHLORIDE TABLETS USP, 25 MG [Suspect]
     Active Substance: SERTRALINE HYDROCHLORIDE
     Indication: PRODUCT USED FOR UNKNOWN INDICATION
     Dosage: 25 MILLIGRAM, UNK
     Route: 065

REACTIONS (4)
  - Insomnia [Recovered/Resolved]
  - Epinephrine increased [Recovered/Resolved]
  - Dyskinesia [Recovered/Resolved]
  - Drug ineffective [Unknown]
